FAERS Safety Report 24407778 (Version 1)
Quarter: 2024Q4

REPORT INFORMATION
  Report Type: Spontaneous
  Country: US (occurrence: US)
  Receive Date: 20241007
  Receipt Date: 20241007
  Transmission Date: 20250115
  Serious: Yes (Death, Other)
  Sender: TEVA
  Company Number: US-TEVA-VS-3248864

PATIENT
  Age: 59 Year
  Sex: Female

DRUGS (1)
  1. WARFARIN SODIUM [Suspect]
     Active Substance: WARFARIN SODIUM
     Indication: Product used for unknown indication
     Route: 065
     Dates: start: 201703, end: 201802

REACTIONS (6)
  - Death [Fatal]
  - Haemorrhage [Unknown]
  - Pain [Unknown]
  - Calciphylaxis [Unknown]
  - Herpes zoster [Unknown]
  - Contusion [Unknown]

NARRATIVE: CASE EVENT DATE: 20180101
